FAERS Safety Report 7413113-7 (Version None)
Quarter: 2011Q2

REPORT INFORMATION
  Report Type: 
  Country: None (occurrence: None)
  Receive Date: 20110413
  Receipt Date: 20110329
  Transmission Date: 20111010
  Serious: Yes (Hospitalization)
  Sender: FDA-Public Use
  Company Number: FR-GENENTECH-316293

PATIENT
  Sex: Male

DRUGS (4)
  1. CISPLATIN [Suspect]
     Indication: MANTLE CELL LYMPHOMA
     Dosage: 200 MG, QAM
     Route: 042
     Dates: start: 20101116
  2. CYTARABINE [Suspect]
     Indication: MANTLE CELL LYMPHOMA
     Dosage: 4 G, QAM
     Route: 065
     Dates: start: 20101117, end: 20101118
  3. RITUXIMAB [Suspect]
     Indication: MANTLE CELL LYMPHOMA
     Dosage: 750 MG, QAM
     Route: 042
     Dates: start: 20101119
  4. DEXAMETASONE [Suspect]
     Indication: MANTLE CELL LYMPHOMA
     Dosage: 40 MG, QAM
     Route: 042
     Dates: start: 20101116, end: 20101119

REACTIONS (4)
  - ANAEMIA [None]
  - HYPOCALCAEMIA [None]
  - THROMBOCYTOPENIA [None]
  - NEUTROPENIA [None]
